FAERS Safety Report 15701037 (Version 7)
Quarter: 2021Q4

REPORT INFORMATION
  Report Type: Report from Study
  Country: DE (occurrence: DE)
  Receive Date: 20181207
  Receipt Date: 20211101
  Transmission Date: 20220303
  Serious: Yes (Hospitalization, Other)
  Sender: FDA-Public Use
  Company Number: DE-BRISTOL-MYERS SQUIBB COMPANY-BMS-2018-113707

PATIENT
  Age: 65 Year
  Sex: Male
  Weight: 103 kg

DRUGS (15)
  1. NIVOLUMAB [Suspect]
     Active Substance: NIVOLUMAB
     Indication: Prostate cancer metastatic
     Dosage: 480 MILLIGRAM
     Route: 042
     Dates: start: 20180817
  2. RUCAPARIB [Suspect]
     Active Substance: RUCAPARIB
     Indication: Prostate cancer metastatic
     Dosage: 600 MILLIGRAM, BID
     Route: 042
     Dates: start: 20180817
  3. PANTOPRAZOLE SODIUM [Concomitant]
     Active Substance: PANTOPRAZOLE SODIUM
     Indication: Product used for unknown indication
     Dosage: 40 MILLIGRAM
     Route: 048
     Dates: start: 2016
  4. BENSERAZIDE\LEVODOPA [Concomitant]
     Active Substance: BENSERAZIDE\LEVODOPA
     Indication: Product used for unknown indication
     Dosage: 125 MILLIGRAM
     Route: 048
     Dates: start: 20180917, end: 201902
  5. VALSARTAN [Concomitant]
     Active Substance: VALSARTAN
     Indication: Product used for unknown indication
     Dosage: 80 MILLIGRAM
     Route: 048
     Dates: start: 2016
  6. BENSERAZIDE HYDROCHLORIDE\LEVODOPA [Concomitant]
     Active Substance: BENSERAZIDE HYDROCHLORIDE\LEVODOPA
     Indication: Product used for unknown indication
     Dosage: 62.5 MILLIGRAM
     Route: 048
     Dates: start: 20180926, end: 201902
  7. MCP [Concomitant]
     Active Substance: METOCLOPRAMIDE HYDROCHLORIDE
     Indication: Product used for unknown indication
     Dosage: 30 MILLIGRAM
     Route: 048
     Dates: start: 20181102
  8. TORSEMIDE [Concomitant]
     Active Substance: TORSEMIDE
     Indication: Product used for unknown indication
     Dosage: 10 MILLIGRAM
     Route: 048
     Dates: start: 2016
  9. ENOXAPARIN SODIUM [Concomitant]
     Active Substance: ENOXAPARIN SODIUM
     Indication: Product used for unknown indication
     Dosage: UNK
     Route: 058
     Dates: start: 20181130, end: 20181209
  10. AMPHOTERICIN B [Concomitant]
     Active Substance: AMPHOTERICIN B
     Indication: Prophylaxis
     Dosage: UNK
     Route: 065
     Dates: start: 20181130, end: 201812
  11. CALCIVIT D [Concomitant]
     Indication: Product used for unknown indication
     Dosage: 600 MILLIGRAM
     Route: 048
     Dates: start: 2009
  12. ELIGARD [Concomitant]
     Active Substance: LEUPROLIDE ACETATE
     Indication: Product used for unknown indication
     Dosage: UNK
     Route: 058
     Dates: start: 201805
  13. ZOMETA [Concomitant]
     Active Substance: ZOLEDRONIC ACID
     Indication: Product used for unknown indication
     Dosage: UNK
     Route: 065
     Dates: start: 201307
  14. HYDROCHLOROTHIAZIDE [Concomitant]
     Active Substance: HYDROCHLOROTHIAZIDE
     Indication: Product used for unknown indication
     Dosage: 12.5 MILLIGRAM
     Route: 048
     Dates: start: 2017
  15. CLINDAMYCIN [Concomitant]
     Active Substance: CLINDAMYCIN
     Indication: Paronychia
     Dosage: 600 MILLIGRAM, BID
     Route: 042
     Dates: start: 20181204

REACTIONS (1)
  - Febrile neutropenia [Recovered/Resolved]

NARRATIVE: CASE EVENT DATE: 20181130
